FAERS Safety Report 8936765 (Version 2)
Quarter: 2013Q1

REPORT INFORMATION
  Report Type: Report from Study
  Country: US (occurrence: US)
  Receive Date: 20121130
  Receipt Date: 20130102
  Transmission Date: 20140127
  Serious: Yes (Death)
  Sender: FDA-Public Use
  Company Number: US-ROCHE-1159837

PATIENT
  Sex: Female
  Weight: 81.72 kg

DRUGS (1)
  1. CAPECITABINE [Suspect]
     Indication: METASTASES TO BREAST
     Route: 065
     Dates: start: 2006

REACTIONS (1)
  - Disease progression [Fatal]
